FAERS Safety Report 7479602-4 (Version None)
Quarter: 2011Q2

REPORT INFORMATION
  Report Type: 
  Country: None (occurrence: None)
  Receive Date: 20110513
  Receipt Date: 20110428
  Transmission Date: 20111010
  Serious: Yes (Other)
  Sender: FDA-Public Use
  Company Number: JP-JNJFOC-20110408456

PATIENT
  Age: 11 Year
  Sex: Female

DRUGS (4)
  1. DEXCHLORPHENIRAMINE MALEATE [Concomitant]
     Indication: PRURITUS
     Route: 048
  2. DEXCHLORPHENIRAMINE MALEATE [Concomitant]
     Indication: ECZEMA
     Route: 048
  3. ZYRTEC [Suspect]
     Indication: ASTHMA
     Route: 048
  4. ZYRTEC [Suspect]
     Indication: DERMATITIS ATOPIC
     Route: 048

REACTIONS (3)
  - BLOOD PRESSURE DECREASED [None]
  - ASTHENIA [None]
  - ANAPHYLACTIC REACTION [None]
